FAERS Safety Report 15658539 (Version 2)
Quarter: 2018Q4

REPORT INFORMATION
  Report Type: Spontaneous
  Country: DE (occurrence: DE)
  Receive Date: 20181126
  Receipt Date: 20181217
  Transmission Date: 20190205
  Serious: Yes (Other)
  Sender: FDA-Public Use
  Company Number: DE-SA-2018SA316452

PATIENT
  Sex: Female

DRUGS (3)
  1. LEMTRADA [Suspect]
     Active Substance: ALEMTUZUMAB
     Dosage: STANDARD DOSE 2*5 DAYS
     Route: 041
     Dates: start: 20170626, end: 20170630
  2. LEMTRADA [Suspect]
     Active Substance: ALEMTUZUMAB
     Indication: MULTIPLE SCLEROSIS
     Dosage: STANDARD DOSE 2*5 DAYS
     Route: 041
     Dates: start: 20180627, end: 20180630
  3. PREGABALIN. [Concomitant]
     Active Substance: PREGABALIN
     Indication: PAIN
     Dosage: 100-0-150 MG
     Route: 048
     Dates: start: 2018

REACTIONS (3)
  - Eczema [Unknown]
  - Fungal infection [Unknown]
  - Cervix disorder [Unknown]

NARRATIVE: CASE EVENT DATE: 2018
